FAERS Safety Report 6734396-2 (Version None)
Quarter: 2010Q2

REPORT INFORMATION
  Report Type: 
  Country: None (occurrence: None)
  Receive Date: 20100520
  Receipt Date: 20100507
  Transmission Date: 20101027
  Serious: Yes (Life-Threatening, Hospitalization, Other)
  Sender: FDA-Public Use
  Company Number: US-ELI_LILLY_AND_COMPANY-US201004006053

PATIENT
  Sex: Female
  Weight: 63.492 kg

DRUGS (5)
  1. CYMBALTA [Suspect]
     Indication: MAJOR DEPRESSION
     Dosage: 30 MG, UNK
     Route: 048
     Dates: start: 20100409, end: 20100412
  2. ZOLOFT [Concomitant]
     Indication: MAJOR DEPRESSION
     Dosage: 100 MG, UNK
  3. AMBIEN CR [Concomitant]
     Indication: INSOMNIA
     Dosage: 12.5 MG, UNK
     Dates: start: 20100104
  4. TRAZODONE HCL [Concomitant]
     Indication: DEPRESSION
     Dosage: 50 MG, AS NEEDED
     Dates: start: 20100104
  5. OMEPRAZOLE [Concomitant]
     Indication: IRRITABLE BOWEL SYNDROME

REACTIONS (6)
  - ALANINE AMINOTRANSFERASE INCREASED [None]
  - ASPARTATE AMINOTRANSFERASE INCREASED [None]
  - BLOOD ALKALINE PHOSPHATASE INCREASED [None]
  - CHEST PAIN [None]
  - HEPATOCELLULAR INJURY [None]
  - PLATELET COUNT DECREASED [None]
